FAERS Safety Report 8016867-4 (Version None)
Quarter: 2012Q1

REPORT INFORMATION
  Report Type: 
  Country: None (occurrence: None)
  Receive Date: 20120102
  Receipt Date: 20111221
  Transmission Date: 20120608
  Serious: Yes (Other)
  Sender: FDA-Public Use
  Company Number: PHEH2011US07676

PATIENT
  Sex: Female
  Weight: 47.166 kg

DRUGS (4)
  1. OXYCODONE HCL [Concomitant]
     Indication: PAIN
     Dosage: 05 G, UNK
     Dates: start: 20111014
  2. EXJADE [Suspect]
     Dosage: 1000 MG, QD
     Route: 048
  3. SYNTHROID [Concomitant]
     Indication: HYPOTHYROIDISM
  4. EXJADE [Suspect]
     Dosage: 1000 MG, QD
     Route: 048
     Dates: start: 20100927

REACTIONS (5)
  - HEADACHE [None]
  - KIDNEY INFECTION [None]
  - FLANK PAIN [None]
  - NEPHROLITHIASIS [None]
  - DIZZINESS [None]
